FAERS Safety Report 13288142 (Version 1)
Quarter: 2017Q1

REPORT INFORMATION
  Report Type: Spontaneous
  Country: US (occurrence: US)
  Receive Date: 20170302
  Receipt Date: 20170302
  Transmission Date: 20170428
  Serious: Yes (Other)
  Sender: FDA-Public Use
  Company Number: US-AMGEN-USASP2017029625

PATIENT
  Age: 85 Year
  Sex: Female

DRUGS (2)
  1. BLINCYTO [Suspect]
     Active Substance: BLINATUMOMAB
     Indication: ACUTE LYMPHOCYTIC LEUKAEMIA
     Dosage: 9 MUG, QD
     Route: 042
  2. BLINCYTO [Suspect]
     Active Substance: BLINATUMOMAB
     Dosage: 28 MUG, QD
     Route: 065

REACTIONS (5)
  - Hypoxia [Recovered/Resolved]
  - Hypotension [Recovered/Resolved]
  - Fluid overload [Recovered/Resolved]
  - Mental status changes [Recovered/Resolved]
  - Pyrexia [Recovered/Resolved]
